FAERS Safety Report 5773335-8 (Version None)
Quarter: 2008Q2

REPORT INFORMATION
  Report Type: 
  Country: None (occurrence: None)
  Receive Date: 20080616
  Receipt Date: 20080605
  Transmission Date: 20081010
  Serious: Yes (Hospitalization)
  Sender: FDA-Public Use
  Company Number: JP-JNJFOC-20080602743

PATIENT
  Age: 44 Year
  Sex: Male

DRUGS (15)
  1. LOPERAMIDE HCL [Suspect]
     Indication: DIARRHOEA
  2. LOXOPROFEN [Suspect]
     Indication: PYREXIA
  3. LANSOPRAZOLE [Concomitant]
  4. ATORVASTATIN CALCIUM [Concomitant]
  5. CANDESARTAN CILEXETIL [Concomitant]
  6. ASPIRIN [Concomitant]
  7. ALLOPURINOL [Concomitant]
  8. NIFEDIPINE [Concomitant]
  9. SENNOSIDE [Concomitant]
  10. ALPRAZOLAM [Concomitant]
  11. FUROSEMIDE [Concomitant]
  12. ZOLPIDEM [Concomitant]
  13. DOXAZOSIN MESYLATE [Concomitant]
  14. SEVELAMER HYDROCHLORIDE [Concomitant]
  15. NITRAZEPAM [Concomitant]

REACTIONS (2)
  - CARCINOEMBRYONIC ANTIGEN INCREASED [None]
  - DRUG RASH WITH EOSINOPHILIA AND SYSTEMIC SYMPTOMS [None]
